FAERS Safety Report 9283831 (Version 1)
Quarter: 2013Q2

REPORT INFORMATION
  Report Type: Spontaneous
  Country: US (occurrence: US)
  Receive Date: 20130510
  Receipt Date: 20130510
  Transmission Date: 20140414
  Serious: Yes (Hospitalization)
  Sender: FDA-Public Use
  Company Number: US-GLAXOSMITHKLINE-A0973709A

PATIENT
  Age: 44 Year
  Sex: Female
  Weight: 81.72 kg

DRUGS (27)
  1. BENLYSTA [Suspect]
     Indication: SYSTEMIC LUPUS ERYTHEMATOSUS
     Route: 042
     Dates: start: 20120406, end: 20120406
  2. PREDNISONE [Concomitant]
     Dosage: 40MG PER DAY
  3. PLAQUENIL [Concomitant]
     Dosage: 200MG TWICE PER DAY
  4. CELLCEPT [Concomitant]
     Dosage: 1000MG PER DAY
  5. CYMBALTA [Concomitant]
     Dosage: 90MG PER DAY
  6. ZYRTEC [Concomitant]
     Dosage: 10MG AT NIGHT
  7. ALLEGRA [Concomitant]
     Dosage: 180MG TWICE PER DAY
  8. ADVAIR [Concomitant]
     Dosage: 2PUFF PER DAY
  9. SYNTHROID [Concomitant]
     Dosage: .4MG PER DAY
  10. EVOXAC [Concomitant]
     Dosage: 30MG THREE TIMES PER DAY
  11. SINGULAIR [Concomitant]
     Dosage: 10MG PER DAY
  12. SOMA [Concomitant]
     Dosage: 350MG THREE TIMES PER DAY
  13. LIDOCAINE [Concomitant]
  14. FERROUS SULFATE [Concomitant]
     Dosage: 650MG PER DAY
  15. ALBUTEROL [Concomitant]
  16. LASIX [Concomitant]
     Dosage: 40MG PER DAY
  17. K-DUR [Concomitant]
     Dosage: 40MEQ THREE TIMES PER DAY
  18. ADDERALL [Concomitant]
     Dosage: 30MG PER DAY
  19. FENTORA [Concomitant]
     Indication: PAIN
     Dosage: 400MCG SIX TIMES PER DAY
  20. DILAUDID [Concomitant]
     Indication: PAIN
     Route: 037
  21. ATARAX [Concomitant]
  22. NEURONTIN [Concomitant]
     Dosage: 200MG TWICE PER DAY
  23. TYLENOL [Concomitant]
     Indication: PREMEDICATION
  24. BENADRYL [Concomitant]
     Indication: PREMEDICATION
  25. SOLUMEDROL [Concomitant]
     Indication: PREMEDICATION
  26. THYROID MEDICATION [Concomitant]
  27. ANTIHISTAMINE [Concomitant]

REACTIONS (9)
  - Infusion related reaction [Unknown]
  - Hypoaesthesia oral [Recovered/Resolved]
  - Diarrhoea [Not Recovered/Not Resolved]
  - Paraesthesia oral [Recovered/Resolved]
  - Swelling face [Unknown]
  - Blood electrolytes decreased [Not Recovered/Not Resolved]
  - Cardiac disorder [Not Recovered/Not Resolved]
  - Cardiovascular disorder [Not Recovered/Not Resolved]
  - Blood potassium decreased [Not Recovered/Not Resolved]
